FAERS Safety Report 10026801 (Version 1)
Quarter: 2014Q1

REPORT INFORMATION
  Report Type: Spontaneous
  Country: BR (occurrence: BR)
  Receive Date: 20140321
  Receipt Date: 20140321
  Transmission Date: 20141002
  Serious: Yes (Other)
  Sender: FDA-Public Use
  Company Number: BR-SHIRE-BR201400535

PATIENT
  Sex: Male

DRUGS (1)
  1. VENVANSE [Suspect]
     Indication: PRODUCT USED FOR UNKNOWN INDICATION
     Dosage: UNK, UNKNOWN
     Route: 048

REACTIONS (4)
  - Malaise [Unknown]
  - Tachycardia [Unknown]
  - Dizziness [Unknown]
  - Hyperhidrosis [Unknown]
